FAERS Safety Report 9916110 (Version 1)
Quarter: 2014Q1

REPORT INFORMATION
  Report Type: Report from Study
  Country: CA (occurrence: CA)
  Receive Date: 20140221
  Receipt Date: 20140221
  Transmission Date: 20141002
  Serious: Yes (Other)
  Sender: FDA-Public Use
  Company Number: CA-BRISTOL-MYERS SQUIBB COMPANY-20208427

PATIENT
  Age: 59 Year
  Sex: Male

DRUGS (8)
  1. ORENCIA [Suspect]
     Indication: RHEUMATOID ARTHRITIS
     Dosage: 1 DF=750 UNIT NOS?ONGOING
     Dates: start: 20100216
  2. ATACAND PLUS [Concomitant]
  3. METHOTREXATE [Concomitant]
  4. FOLIC ACID [Concomitant]
  5. VITAMIN D [Concomitant]
  6. CEPHALEXIN [Concomitant]
  7. PREDNISONE [Concomitant]
  8. PERCOCET [Concomitant]

REACTIONS (1)
  - Ligament disorder [Unknown]
